FAERS Safety Report 15868910 (Version 1)
Quarter: 2019Q1

REPORT INFORMATION
  Report Type: Spontaneous
  Country: JP (occurrence: JP)
  Receive Date: 20190125
  Receipt Date: 20190125
  Transmission Date: 20190417
  Serious: Yes (Other)
  Sender: FDA-Public Use
  Company Number: JP-GLAXOSMITHKLINE-JP2019JPN010741

PATIENT
  Sex: Male

DRUGS (3)
  1. EVIPROSTAT-DB [Concomitant]
     Dosage: UNK
     Route: 048
  2. AVOLVE [Suspect]
     Active Substance: DUTASTERIDE
     Indication: BENIGN PROSTATIC HYPERPLASIA
     Dosage: UNK UNK, QD
     Route: 048
     Dates: start: 201810
  3. URIEF [Concomitant]
     Active Substance: SILODOSIN
     Dosage: UNK
     Dates: start: 201810

REACTIONS (4)
  - Urethral stenosis [Unknown]
  - Urinary retention [Unknown]
  - Micturition disorder [Unknown]
  - Bladder dilatation [Unknown]
